FAERS Safety Report 12426942 (Version 5)
Quarter: 2016Q3

REPORT INFORMATION
  Report Type: Spontaneous
  Country: US (occurrence: US)
  Receive Date: 20160601
  Receipt Date: 20160805
  Transmission Date: 20161109
  Serious: Yes (Other)
  Sender: FDA-Public Use
  Company Number: US-GILEAD-2016-0216016

PATIENT
  Age: 64 Year
  Sex: Male
  Weight: 82.5 kg

DRUGS (6)
  1. ALEVE [Concomitant]
     Active Substance: NAPROXEN SODIUM
  2. MICARDIS [Concomitant]
     Active Substance: TELMISARTAN
  3. THERAGRAN                          /01824401/ [Concomitant]
  4. NORVASC [Concomitant]
     Active Substance: AMLODIPINE BESYLATE
  5. HYDRODIURIL [Concomitant]
     Active Substance: HYDROCHLOROTHIAZIDE
  6. HARVONI [Suspect]
     Active Substance: LEDIPASVIR\SOFOSBUVIR
     Indication: HEPATITIS C
     Dosage: 1 DF, QD
     Route: 048
     Dates: start: 20160506

REACTIONS (8)
  - Myalgia [Unknown]
  - Blister [Unknown]
  - Endoscopy [Unknown]
  - Pyrexia [Recovered/Resolved]
  - Swelling [Unknown]
  - Gastric ulcer [Unknown]
  - Fatigue [Unknown]
  - Tenderness [Unknown]

NARRATIVE: CASE EVENT DATE: 20160518
